FAERS Safety Report 25859027 (Version 1)
Quarter: 2025Q3

REPORT INFORMATION
  Report Type: Spontaneous
  Country: EU (occurrence: EU)
  Receive Date: 20250929
  Receipt Date: 20250929
  Transmission Date: 20251021
  Serious: Yes (Death, Other)
  Sender: BAYER HEALTHCARE PHARMACEUTICALS INC.
  Company Number: EU-BAYER-2025A125797

PATIENT
  Age: 28 Year
  Sex: Female

DRUGS (2)
  1. STIVARGA [Suspect]
     Active Substance: REGORAFENIB MONOHYDRATE
     Indication: Chondrosarcoma metastatic
     Dates: start: 202007
  2. STIVARGA [Suspect]
     Active Substance: REGORAFENIB MONOHYDRATE
     Indication: Metastases to lung
     Dates: start: 202401

REACTIONS (7)
  - Disease progression [Fatal]
  - Pneumomediastinum [Recovered/Resolved]
  - Pneumothorax [None]
  - Pulmonary cavitation [None]
  - Chest pain [None]
  - Dyspnoea [None]
  - Product use in unapproved indication [None]

NARRATIVE: CASE EVENT DATE: 20200701
